FAERS Safety Report 8173723-9 (Version None)
Quarter: 2012Q1

REPORT INFORMATION
  Report Type: 
  Country: None (occurrence: None)
  Receive Date: 20120227
  Receipt Date: 20120213
  Transmission Date: 20120608
  Serious: Yes (Hospitalization, Other)
  Sender: FDA-Public Use
  Company Number: 2012AL000012

PATIENT
  Age: 34 Year
  Sex: Female

DRUGS (1)
  1. FOLOTYN [Suspect]
     Indication: PERIPHERAL T-CELL LYMPHOMA UNSPECIFIED
     Dosage: QW, IV
     Route: 042
     Dates: start: 20110518

REACTIONS (8)
  - ABDOMINAL PAIN UPPER [None]
  - THYROID NEOPLASM [None]
  - BLISTER [None]
  - STOMATITIS [None]
  - DEVICE RELATED INFECTION [None]
  - CELLULITIS [None]
  - RED BLOOD CELL COUNT DECREASED [None]
  - PLATELET COUNT INCREASED [None]
